FAERS Safety Report 4326408-0 (Version None)
Quarter: 2004Q1

REPORT INFORMATION
  Report Type: 
  Country: None (occurrence: None)
  Receive Date: 20040325
  Receipt Date: 20031016
  Transmission Date: 20041129
  Serious: No
  Sender: FDA-Public Use
  Company Number: US051745

PATIENT
  Age: 54 Year
  Sex: Female
  Weight: 48.1 kg

DRUGS (7)
  1. ARANESP [Suspect]
     Indication: ANAEMIA OF MALIGNANT DISEASE
     Dosage: 200 MG, WEEKLY, IV
     Route: 042
     Dates: start: 20030601
  2. NEULASTA [Suspect]
     Indication: CHEMOTHERAPY
     Dosage: 6 MG, SC
     Route: 058
  3. DEXAMETHASONE [Concomitant]
  4. ENOXAPARIN SODIUM [Concomitant]
  5. CARBOPLATIN [Concomitant]
  6. GEMCITABINEHCL [Concomitant]
  7. ONDANSETRON HCL [Concomitant]

REACTIONS (5)
  - ABDOMINAL PAIN UPPER [None]
  - INFECTION [None]
  - NEUTROPENIA [None]
  - PLATELET COUNT DECREASED [None]
  - THERAPEUTIC RESPONSE DECREASED [None]
